FAERS Safety Report 4458243-7 (Version None)
Quarter: 2004Q3

REPORT INFORMATION
  Report Type: 
  Country: None (occurrence: None)
  Receive Date: 20040924
  Receipt Date: 20040914
  Transmission Date: 20050211
  Serious: Yes (Hospitalization)
  Sender: FDA-Public Use
  Company Number: JP-JNJFOC-20040903980

PATIENT
  Age: 47 Year
  Sex: Female

DRUGS (1)
  1. OFLOCET [Suspect]
     Indication: DRUG USE FOR UNKNOWN INDICATION
     Route: 049
     Dates: start: 20001101

REACTIONS (5)
  - ANXIETY [None]
  - APHASIA [None]
  - CHEST DISCOMFORT [None]
  - DYSPNOEA [None]
  - PARALYSIS [None]
